FAERS Safety Report 6165515-7 (Version None)
Quarter: 2009Q2

REPORT INFORMATION
  Report Type: 
  Country: None (occurrence: None)
  Receive Date: 20090423
  Receipt Date: 20090417
  Transmission Date: 20091009
  Serious: Yes (Hospitalization, Other)
  Sender: FDA-Public Use
  Company Number: US-ASTRAZENECA-2008UW26358

PATIENT
  Age: 17270 Day
  Sex: Female
  Weight: 97.5 kg

DRUGS (7)
  1. SEROQUEL [Suspect]
     Indication: DEPRESSION
     Dosage: 25 MG, 100 MG, 125 MG
     Route: 048
     Dates: start: 20040410, end: 20080105
  2. ZOLOFT [Concomitant]
     Dates: start: 20040101, end: 20060801
  3. DOXEPIN HCL [Concomitant]
     Dates: start: 20061001
  4. SERTRALINE HCL [Concomitant]
     Dates: start: 20061201, end: 20080101
  5. CLONAZEPAM [Concomitant]
     Dates: start: 20040101, end: 20080101
  6. BUPROPION HCL [Concomitant]
     Dates: start: 20060201, end: 20070301
  7. WELLBUTRIN [Concomitant]
     Dates: start: 20060601, end: 20070101

REACTIONS (6)
  - CHOLEDOCHAL CYST [None]
  - CHOLELITHIASIS [None]
  - KETOACIDOSIS [None]
  - METABOLIC SYNDROME [None]
  - PANCREATITIS [None]
  - TYPE 1 DIABETES MELLITUS [None]
